FAERS Safety Report 23998856 (Version 1)
Quarter: 2024Q2

REPORT INFORMATION
  Report Type: Spontaneous
  Country: TR (occurrence: TR)
  Receive Date: 20240621
  Receipt Date: 20240621
  Transmission Date: 20240716
  Serious: Yes (Other)
  Sender: FDA-Public Use
  Company Number: TR-MLMSERVICE-20240605-PI086900-00106-1

PATIENT
  Age: 35 Year
  Sex: Female

DRUGS (1)
  1. CLOPIDOGREL [Suspect]
     Active Substance: CLOPIDOGREL BISULFATE
     Indication: Cerebral venous sinus thrombosis

REACTIONS (2)
  - Haemorrhage [Unknown]
  - Sciatic nerve neuropathy [Unknown]
